FAERS Safety Report 6920318-8 (Version None)
Quarter: 2010Q3

REPORT INFORMATION
  Report Type: 
  Country: None (occurrence: None)
  Receive Date: 20100809
  Receipt Date: 20100727
  Transmission Date: 20110219
  Serious: Yes (Other)
  Sender: FDA-Public Use
  Company Number: 7010224

PATIENT
  Age: 45 Year
  Sex: Female
  Weight: 70 kg

DRUGS (3)
  1. REBIF [Suspect]
     Indication: MULTIPLE SCLEROSIS
     Dosage: 44 MCG, 3 IN 1 WK, SUBCUTANEOUS
     Route: 058
     Dates: start: 20031128, end: 20100601
  2. DIOVAN [Concomitant]
  3. LIPITOR [Concomitant]

REACTIONS (2)
  - BENIGN UTERINE NEOPLASM [None]
  - ECONOMIC PROBLEM [None]
